FAERS Safety Report 5691037-3 (Version None)
Quarter: 2008Q2

REPORT INFORMATION
  Report Type: 
  Country: None (occurrence: None)
  Receive Date: 20080401
  Receipt Date: 20080312
  Transmission Date: 20081010
  Serious: Yes (Hospitalization)
  Sender: FDA-Public Use
  Company Number: TH-ASTRAZENECA-2008AP01874

PATIENT
  Age: 24536 Day
  Sex: Female

DRUGS (24)
  1. ASPIRIN [Suspect]
     Dosage: START DATE: MORE THAN A MONTH PRIOR TO STUDY START
     Dates: end: 20080203
  2. ASPIRIN [Suspect]
     Dates: start: 20080204, end: 20080205
  3. ASPIRIN [Suspect]
     Dates: start: 20080208
  4. OMEPRAZOLE [Suspect]
     Route: 042
     Dates: start: 20080205, end: 20080205
  5. OMEPRAZOLE [Suspect]
     Dates: start: 20080211
  6. CORDARONE [Suspect]
  7. KALIMATE [Suspect]
     Dates: start: 20080310, end: 20080311
  8. ENALAPRIL MALEATE [Suspect]
     Dosage: HALF TABLET
     Route: 048
     Dates: start: 20080210, end: 20080210
  9. ENALAPRIL MALEATE [Suspect]
     Route: 048
     Dates: start: 20080211
  10. SIMVASTATIN [Suspect]
     Dosage: START DATE: MORE THAN ONE MONTH PRIOR TO STUDY START
  11. SIMVASTATIN [Suspect]
     Dates: start: 20080209
  12. BRUFEN [Suspect]
     Dates: start: 20080311
  13. RANITIDINE [Suspect]
  14. AZD6140 CODE NOT BROKEN [Suspect]
     Indication: ACUTE CORONARY SYNDROME
     Route: 048
     Dates: start: 20080205
  15. ISORDIL [Concomitant]
     Dosage: } 1 MONTH PRIOR TO STUDY START
  16. ISORDIL [Concomitant]
     Dates: start: 20080204
  17. ATIVAN [Concomitant]
     Dates: start: 20080209
  18. SENOKOT [Concomitant]
     Dates: start: 20080209
  19. MORPHINE [Concomitant]
     Dates: start: 20080205, end: 20080207
  20. MORPHINE [Concomitant]
     Route: 042
     Dates: start: 20080208
  21. TAZOCIN [Concomitant]
     Route: 042
     Dates: start: 20080208
  22. DIGOXIN [Concomitant]
     Dates: start: 20080208
  23. METOPROLOL TARTRATE [Concomitant]
     Dates: start: 20080204
  24. ENOXAPARIN SODIUM [Concomitant]

REACTIONS (1)
  - DYSPNOEA [None]
